FAERS Safety Report 13289346 (Version 1)
Quarter: 2017Q1

REPORT INFORMATION
  Report Type: Spontaneous
  Country: NL (occurrence: NL)
  Receive Date: 20170302
  Receipt Date: 20170302
  Transmission Date: 20170428
  Serious: Yes (Life-Threatening)
  Sender: FDA-Public Use
  Company Number: NL-DEPOMED, INC.-NL-2017DEP000460

PATIENT
  Age: 55 Year
  Sex: Female

DRUGS (5)
  1. DICLOFENAC [Suspect]
     Active Substance: DICLOFENAC
     Dosage: 10 MG, SINGLE
     Route: 048
  2. DICLOFENAC [Suspect]
     Active Substance: DICLOFENAC
     Dosage: 25 MG, SINGLE
     Route: 048
  3. DICLOFENAC [Suspect]
     Active Substance: DICLOFENAC
     Indication: PRODUCT USED FOR UNKNOWN INDICATION
     Dosage: 0.1 MG, SINGLE
     Route: 048
  4. DICLOFENAC [Suspect]
     Active Substance: DICLOFENAC
     Dosage: 50 MG, SINGLE
     Route: 048
  5. DICLOFENAC [Suspect]
     Active Substance: DICLOFENAC
     Dosage: 1.0 MG, SINGLE
     Route: 048

REACTIONS (2)
  - Drug hypersensitivity [Unknown]
  - Anaphylactic shock [Unknown]
